FAERS Safety Report 8476804-5 (Version None)
Quarter: 2012Q2

REPORT INFORMATION
  Report Type: 
  Country: None (occurrence: None)
  Receive Date: 20120628
  Receipt Date: 20120620
  Transmission Date: 20120825
  Serious: Yes (Hospitalization)
  Sender: FDA-Public Use
  Company Number: IT-BRISTOL-MYERS SQUIBB COMPANY-16700387

PATIENT
  Sex: Male

DRUGS (2)
  1. ETOPOSIDE [Suspect]
  2. CARBOPLATIN [Suspect]

REACTIONS (2)
  - HYPOTENSION [None]
  - FEBRILE NEUTROPENIA [None]
